FAERS Safety Report 9119319 (Version 3)
Quarter: 2013Q2

REPORT INFORMATION
  Report Type: Spontaneous
  Country: BR (occurrence: BR)
  Receive Date: 20130226
  Receipt Date: 20130515
  Transmission Date: 20140414
  Serious: Yes (Hospitalization, Other)
  Sender: FDA-Public Use
  Company Number: PHHY2013BR017777

PATIENT
  Age: 83 Year
  Sex: Male
  Weight: 78 kg

DRUGS (14)
  1. EXELON PATCH [Suspect]
     Indication: DEMENTIA ALZHEIMER^S TYPE
     Dosage: 4.6 MG DAILY
     Route: 062
  2. EXELON PATCH [Suspect]
     Dosage: 9.5 MG DAILY
     Route: 062
  3. EXELON PATCH [Suspect]
     Dosage: 4.6 MG DAILY
     Route: 062
  4. EXELON PATCH [Suspect]
     Dosage: 13.3 MG, UNK
     Route: 062
  5. OLCADIL [Suspect]
     Indication: ANXIETY
     Dosage: 1 MG DAILY
     Route: 048
  6. PURAN T4 [Concomitant]
     Indication: HYPOTHYROIDISM
     Dosage: 25 UG IN THE MORNING
     Route: 048
  7. FRONTAL [Concomitant]
     Indication: ANXIOLYTIC THERAPY
     Dosage: 1 MG, 1 TABLET IN THE MORNING AND ONE TABLET IN THE AFTERNOON
     Route: 048
  8. CYMBALTA [Concomitant]
     Indication: DEPRESSION
     Dosage: 60 MG IN THE AFTERNOON
     Route: 048
  9. MIRTAZAPINA [Concomitant]
     Indication: INSOMNIA
     Dosage: 1 MG DAILY
     Route: 048
  10. SEROQUEL [Concomitant]
     Indication: HALLUCINATION
     Dosage: 0.5 DF AT NIGHT
     Route: 048
  11. SEROQUEL [Concomitant]
     Indication: AGITATION
  12. DIGESAN [Concomitant]
     Indication: DYSPEPSIA
     Dosage: 2 DF, 1 TABLET BEFORE LUNCH AND ONE TABLET BEFORE DINNER
     Route: 048
  13. PRADAXA [Concomitant]
     Indication: ARRHYTHMIA
     Dosage: 220 MG, ONE TABLET IN THE AFTERNOON ONE TABLET AT NIGHT
     Route: 048
  14. ANCORON [Concomitant]
     Indication: ARRHYTHMIA
     Dosage: 2 DF, ONE TABLET IN THE AFTERNOON, ONE TABLET AT NIGHT
     Route: 048

REACTIONS (15)
  - Blood pressure fluctuation [Not Recovered/Not Resolved]
  - Panic attack [Recovered/Resolved]
  - Head injury [Recovered/Resolved]
  - Gastritis atrophic [Recovered/Resolved]
  - Nausea [Recovered/Resolved]
  - Vomiting [Recovered/Resolved]
  - Weight increased [Recovered/Resolved]
  - Lethargy [Recovering/Resolving]
  - Arrhythmia [Recovered/Resolved]
  - Dementia Alzheimer^s type [Recovering/Resolving]
  - Agitation [Recovering/Resolving]
  - Hallucination [Recovering/Resolving]
  - Depression [Recovered/Resolved]
  - Fall [Recovered/Resolved]
  - Confusional state [Not Recovered/Not Resolved]
